FAERS Safety Report 6611281-8 (Version None)
Quarter: 2010Q1

REPORT INFORMATION
  Report Type: 
  Country: None (occurrence: None)
  Receive Date: 20100222
  Receipt Date: 20100215
  Transmission Date: 20100710
  Serious: Yes (Congenital Anomaly)
  Sender: FDA-Public Use
  Company Number: 2009SP036400

PATIENT

DRUGS (2)
  1. REBETOL [Suspect]
     Indication: DRUG EXPOSURE DURING PREGNANCY
     Dosage: ;TRPL
     Route: 064
  2. COPEGUS (RIBAVIRIN /00816701/) [Suspect]
     Indication: DRUG EXPOSURE DURING PREGNANCY
     Dosage: ;TRPL
     Route: 064

REACTIONS (2)
  - GASTROINTESTINAL DISORDER CONGENITAL [None]
  - MATERNAL DRUGS AFFECTING FOETUS [None]
